FAERS Safety Report 4359226-8 (Version None)
Quarter: 2004Q2

REPORT INFORMATION
  Report Type: 
  Country: None (occurrence: None)
  Receive Date: 20040517
  Receipt Date: 20040517
  Transmission Date: 20050107
  Serious: Yes (Hospitalization)
  Sender: FDA-Public Use
  Company Number: None

PATIENT
  Age: 61 Year
  Sex: Male

DRUGS (4)
  1. BACLOFEN [Suspect]
     Indication: MUSCLE SPASMS
     Dosage: 10 MG QID
     Dates: start: 20031114
  2. OXYCODONE [Concomitant]
  3. FENTANYL [Concomitant]
  4. TEMAZEPAM [Concomitant]

REACTIONS (1)
  - MENTAL STATUS CHANGES [None]
